FAERS Safety Report 9771337 (Version 1)
Quarter: 2013Q4

REPORT INFORMATION
  Report Type: Spontaneous
  Country: BR (occurrence: BR)
  Receive Date: 20131218
  Receipt Date: 20131218
  Transmission Date: 20140711
  Serious: Yes (Other)
  Sender: FDA-Public Use
  Company Number: PHHY2013BR148490

PATIENT
  Sex: Female

DRUGS (1)
  1. RITALINA [Suspect]
     Dosage: UNK UKN, UNK

REACTIONS (1)
  - Drug dependence [Unknown]
